FAERS Safety Report 9024920 (Version 2)
Quarter: 2013Q2

REPORT INFORMATION
  Report Type: Spontaneous
  Country: US (occurrence: US)
  Receive Date: 20121231
  Receipt Date: 20130507
  Transmission Date: 20140414
  Serious: Yes (Death, Hospitalization)
  Sender: FDA-Public Use
  Company Number: US-JNJFOC-20121211640

PATIENT
  Age: 73 Year
  Sex: Male
  Weight: 79.9 kg

DRUGS (4)
  1. DECITABINE [Suspect]
     Indication: ACUTE MYELOID LEUKAEMIA
     Dosage: IN 1 CYCLICAL
     Route: 042
     Dates: start: 20121008
  2. GLIPIZIDE (GLIPIZIDE) [Concomitant]
  3. DUTASTERIDE (DUTASTERIDE) [Concomitant]
  4. ACETAMINOPHEN WITH CODEINE (GALENIC/PARACETAMOL/CODEINE) [Concomitant]

REACTIONS (13)
  - Renal failure acute [None]
  - Atrial fibrillation [None]
  - Delirium [None]
  - Confusional state [None]
  - White blood cell count increased [None]
  - Cardiac arrest [None]
  - Renal failure [None]
  - Toxicity to various agents [None]
  - Staphylococcal bacteraemia [None]
  - Atrial flutter [None]
  - Hypotension [None]
  - Metabolic acidosis [None]
  - Renal tubular necrosis [None]
